FAERS Safety Report 8621591-0 (Version None)
Quarter: 2012Q3

REPORT INFORMATION
  Report Type: 
  Country: None (occurrence: None)
  Receive Date: 20120820
  Receipt Date: 20120820
  Transmission Date: 20120928
  Serious: Yes (Other)
  Sender: FDA-Public Use
  Company Number: None

PATIENT
  Age: 59 Year
  Sex: Female
  Weight: 58.9676 kg

DRUGS (2)
  1. DEXTROAMPHETAMINE [Suspect]
     Indication: ATTENTION DEFICIT/HYPERACTIVITY DISORDER
     Dosage: 10 MG BID PO
     Route: 047
     Dates: start: 20120724, end: 20120824
  2. . [Concomitant]

REACTIONS (8)
  - DIARRHOEA [None]
  - INFLUENZA LIKE ILLNESS [None]
  - HAEMORRHAGE [None]
  - SKIN DISCOLOURATION [None]
  - SKIN LESION [None]
  - CONTUSION [None]
  - WOUND [None]
  - IMPAIRED HEALING [None]
